FAERS Safety Report 6086448-0 (Version None)
Quarter: 2009Q1

REPORT INFORMATION
  Report Type: 
  Country: None (occurrence: None)
  Receive Date: 20090210
  Receipt Date: 20090130
  Transmission Date: 20090719
  Serious: Yes (Death, Other)
  Sender: FDA-Public Use
  Company Number: WAES 0901ESP00056

PATIENT
  Age: 57 Year
  Sex: Male

DRUGS (7)
  1. CANCIDAS [Suspect]
     Indication: ASPERGILLOSIS
     Dosage: 70 MG/1X IV; 50 MG/DAILY IV
     Route: 042
     Dates: start: 20061212, end: 20061212
  2. CANCIDAS [Suspect]
     Indication: MEDIASTINITIS
     Dosage: 70 MG/1X IV; 50 MG/DAILY IV
     Route: 042
     Dates: start: 20061212, end: 20061212
  3. CANCIDAS [Suspect]
     Indication: ASPERGILLOSIS
     Dosage: 70 MG/1X IV; 50 MG/DAILY IV
     Route: 042
     Dates: start: 20061213
  4. CANCIDAS [Suspect]
     Indication: MEDIASTINITIS
     Dosage: 70 MG/1X IV; 50 MG/DAILY IV
     Route: 042
     Dates: start: 20061213
  5. INSULIN [Concomitant]
  6. MEROPENEM [Concomitant]
  7. VANCOMYCIN [Concomitant]

REACTIONS (8)
  - ASPERGILLOSIS [None]
  - ENCEPHALOPATHY [None]
  - HEPATIC FUNCTION ABNORMAL [None]
  - HYPOTENSION [None]
  - LUNG INFECTION PSEUDOMONAL [None]
  - MECHANICAL VENTILATION COMPLICATION [None]
  - SYSTEMIC MYCOSIS [None]
  - WOUND NECROSIS [None]
